FAERS Safety Report 5635440-6 (Version None)
Quarter: 2008Q1

REPORT INFORMATION
  Report Type: 
  Country: None (occurrence: None)
  Receive Date: 20080222
  Receipt Date: 20080212
  Transmission Date: 20080703
  Serious: Yes (Hospitalization)
  Sender: FDA-Public Use
  Company Number: FR-BAYER-200813068GPV

PATIENT
  Age: 92 Year
  Sex: Male

DRUGS (11)
  1. FLUDARA [Suspect]
     Indication: LYMPHOMA
     Route: 042
     Dates: start: 20070907, end: 20071101
  2. MABTHERA [Suspect]
     Indication: LYMPHOMA
     Route: 042
     Dates: start: 20070907, end: 20071130
  3. PREVISCAN [Concomitant]
  4. CORVASAL [Concomitant]
  5. KARDEGIC [Concomitant]
  6. AMLOR [Concomitant]
  7. OMEPRAZOLE [Concomitant]
  8. SERETIDE [Concomitant]
  9. ENDOXAN [Concomitant]
     Indication: LYMPHOMA
  10. SPECIAFOLDINE [Concomitant]
     Indication: CHEMOTHERAPY
     Dates: start: 20070901
  11. BACTRIM [Concomitant]
     Indication: CHEMOTHERAPY
     Dates: start: 20070901, end: 20071115

REACTIONS (1)
  - SKIN EXFOLIATION [None]
